FAERS Safety Report 16329467 (Version 1)
Quarter: 2019Q2

REPORT INFORMATION
  Report Type: Spontaneous
  Country: US (occurrence: US)
  Receive Date: 20190520
  Receipt Date: 20190520
  Transmission Date: 20190711
  Serious: No
  Sender: FDA-Public Use
  Company Number: US-BIOGEN-2019BI00718521

PATIENT
  Sex: Male

DRUGS (1)
  1. TECFIDERA [Suspect]
     Active Substance: DIMETHYL FUMARATE
     Indication: MULTIPLE SCLEROSIS
     Route: 065
     Dates: start: 20190107

REACTIONS (4)
  - Product dose omission [Unknown]
  - Depression [Recovered/Resolved]
  - Memory impairment [Not Recovered/Not Resolved]
  - Intentional dose omission [Recovered/Resolved]
